FAERS Safety Report 8080596-1 (Version None)
Quarter: 2012Q1

REPORT INFORMATION
  Report Type: 
  Country: None (occurrence: None)
  Receive Date: 20120130
  Receipt Date: 20120120
  Transmission Date: 20120608
  Serious: No
  Sender: FDA-Public Use
  Company Number: US-B.I. PHARMACEUTICALS,INC./RIDGEFIELD-2012-BP-01136BP

PATIENT
  Age: 87 Year
  Sex: Male

DRUGS (4)
  1. PRADAXA [Suspect]
     Indication: ATRIAL FIBRILLATION
     Dosage: 300 MG
     Route: 048
     Dates: start: 20120118
  2. VITAMIN D ELIXIR [Concomitant]
     Indication: SUPPLEMENTATION THERAPY
     Route: 048
  3. ASCORBIC ACID [Concomitant]
     Indication: SUPPLEMENTATION THERAPY
     Route: 048
  4. MULTI-VITAMIN [Concomitant]
     Indication: SUPPLEMENTATION THERAPY
     Route: 048

REACTIONS (4)
  - DYSPEPSIA [None]
  - ABDOMINAL DISCOMFORT [None]
  - MUSCULOSKELETAL PAIN [None]
  - ARTHRALGIA [None]
